FAERS Safety Report 8168803-8 (Version None)
Quarter: 2012Q1

REPORT INFORMATION
  Report Type: 
  Country: None (occurrence: None)
  Receive Date: 20120227
  Receipt Date: 20120223
  Transmission Date: 20120608
  Serious: Yes (Disabling)
  Sender: FDA-Public Use
  Company Number: VE-PFIZER INC-2012038520

PATIENT
  Age: 77 Year
  Sex: Female

DRUGS (6)
  1. LIPITOR [Suspect]
     Indication: HYPERCHOLESTEROLAEMIA
     Dosage: UNK
  2. ATACAND [Concomitant]
     Indication: HYPERTENSION
     Dosage: 16 MG, 1X/DAY
     Route: 048
  3. ZOLOFT [Concomitant]
     Indication: NERVOUSNESS
     Dosage: 50 MG, 1X/DAY
     Route: 048
     Dates: start: 20100101, end: 20120101
  4. LEXOTANIL [Concomitant]
     Indication: MIGRAINE
     Dosage: 3 MG, 1X/DAY
     Route: 048
     Dates: start: 19820101
  5. LIPITOR [Suspect]
     Dosage: 20 MG, 1X/DAY
     Route: 048
     Dates: start: 20110801
  6. LEXOTANIL [Concomitant]
     Dosage: 6 MG, 1X/DAY
     Route: 048
     Dates: start: 19820101

REACTIONS (3)
  - DEAFNESS [None]
  - BLINDNESS [None]
  - NERVOUSNESS [None]
